FAERS Safety Report 14094641 (Version 1)
Quarter: 2017Q4

REPORT INFORMATION
  Report Type: Spontaneous
  Country: US (occurrence: US)
  Receive Date: 20171016
  Receipt Date: 20171016
  Transmission Date: 20180321
  Serious: No
  Sender: FDA-Public Use
  Company Number: US-AMGEN-USASP2017045473

PATIENT
  Age: 78 Year
  Sex: Female

DRUGS (2)
  1. ORENCIA [Concomitant]
     Active Substance: ABATACEPT
  2. PROLIA [Suspect]
     Active Substance: DENOSUMAB
     Indication: OSTEOPOROSIS
     Dosage: UNK
     Route: 065

REACTIONS (6)
  - Tooth disorder [Unknown]
  - Cough [Not Recovered/Not Resolved]
  - Back disorder [Unknown]
  - Headache [Unknown]
  - Ear infection [Recovered/Resolved]
  - Back pain [Unknown]
